FAERS Safety Report 14291055 (Version 2)
Quarter: 2019Q4

REPORT INFORMATION
  Report Type: Spontaneous
  Country: DE (occurrence: DE)
  Receive Date: 20171215
  Receipt Date: 20191120
  Transmission Date: 20200122
  Serious: Yes (Hospitalization, Other)
  Sender: FDA-Public Use
  Company Number: DE-AUROBINDO-AUR-APL-2017-45520

PATIENT
  Age: 25 Year
  Sex: Male
  Weight: 82 kg

DRUGS (17)
  1. RISPERIDONE. [Suspect]
     Active Substance: RISPERIDONE
     Indication: SCHIZOPHRENIA
     Dosage: 2 MILLIGRAM
     Route: 048
     Dates: start: 20170329, end: 20170330
  2. TAVOR [Concomitant]
     Dosage: 3 MILLIGRAM
     Route: 048
     Dates: start: 20170325, end: 20170327
  3. OLANZAPINE. [Suspect]
     Active Substance: OLANZAPINE
     Dosage: 20 MILLIGRAM
     Route: 048
     Dates: start: 20170405, end: 20170410
  4. OLANZAPINE. [Suspect]
     Active Substance: OLANZAPINE
     Dosage: 10 MILLIGRAM
     Route: 048
     Dates: start: 20170424, end: 20170426
  5. TAVOR [Concomitant]
     Dosage: 1 MILLIGRAM
     Route: 048
     Dates: start: 20170331, end: 20170403
  6. RISPERIDONE. [Suspect]
     Active Substance: RISPERIDONE
     Dosage: 4 MILLIGRAM
     Route: 048
     Dates: start: 20170401, end: 20170402
  7. RISPERIDONE. [Suspect]
     Active Substance: RISPERIDONE
     Dosage: 1 MILLIGRAM
     Route: 048
     Dates: start: 20170404, end: 20170404
  8. OLANZAPINE. [Suspect]
     Active Substance: OLANZAPINE
     Dosage: 30 MILLIGRAM
     Route: 048
     Dates: start: 20170326, end: 20170404
  9. OLANZAPINE. [Suspect]
     Active Substance: OLANZAPINE
     Dosage: 30 MILLIGRAM
     Route: 048
     Dates: start: 20170411, end: 20170418
  10. RISPERIDONE. [Suspect]
     Active Substance: RISPERIDONE
     Dosage: 3 MILLIGRAM
     Route: 048
     Dates: start: 20170403, end: 20170403
  11. OLANZAPINE. [Suspect]
     Active Substance: OLANZAPINE
     Dosage: 5 MILLIGRAM
     Route: 048
     Dates: start: 20170427, end: 20170429
  12. OLANZAPINE. [Suspect]
     Active Substance: OLANZAPINE
     Dosage: 20 MILLIGRAM
     Route: 048
     Dates: start: 20170419, end: 20170422
  13. TAVOR [Concomitant]
     Dosage: 0.5 MILLIGRAM
     Route: 048
     Dates: start: 20170404
  14. OLANZAPINE. [Suspect]
     Active Substance: OLANZAPINE
     Dosage: 15 MILLIGRAM
     Route: 048
     Dates: start: 20170423, end: 20170423
  15. TAVOR [Concomitant]
     Indication: PRODUCT USED FOR UNKNOWN INDICATION
     Dosage: 2 MILLIGRAM
     Route: 048
     Dates: start: 20170328, end: 20170330
  16. OLANZAPINE. [Suspect]
     Active Substance: OLANZAPINE
     Indication: SCHIZOPHRENIA
     Dosage: 15 MILLIGRAM
     Route: 048
     Dates: start: 20170323, end: 20170325
  17. RISPERIDONE. [Suspect]
     Active Substance: RISPERIDONE
     Dosage: 3 MILLIGRAM
     Route: 048
     Dates: start: 20170331, end: 20170331

REACTIONS (3)
  - Abdominal pain [Unknown]
  - Nausea [Unknown]
  - Transaminases increased [Recovered/Resolved]

NARRATIVE: CASE EVENT DATE: 20170403
